FAERS Safety Report 16675022 (Version 2)
Quarter: 2019Q3

REPORT INFORMATION
  Report Type: Spontaneous
  Country: US (occurrence: US)
  Receive Date: 20190806
  Receipt Date: 20190903
  Transmission Date: 20191004
  Serious: No
  Sender: FDA-Public Use
  Company Number: US-SA-2019SA208930

PATIENT
  Age: 27 Year
  Sex: Female

DRUGS (5)
  1. FLOVENT [Concomitant]
     Active Substance: FLUTICASONE PROPIONATE
  2. ATIVAN [Concomitant]
     Active Substance: LORAZEPAM
  3. DUPIXENT [Suspect]
     Active Substance: DUPILUMAB
     Indication: ASTHMA
     Dosage: 300MG/2ML; QOW
     Route: 058
     Dates: start: 20190524
  4. VENTOLIN [Concomitant]
     Active Substance: ALBUTEROL SULFATE
  5. EPIPEN [Concomitant]
     Active Substance: EPINEPHRINE

REACTIONS (3)
  - Eye disorder [Not Recovered/Not Resolved]
  - Asthma [Not Recovered/Not Resolved]
  - Visual impairment [Not Recovered/Not Resolved]

NARRATIVE: CASE EVENT DATE: 201906
